FAERS Safety Report 13582452 (Version 3)
Quarter: 2017Q2

REPORT INFORMATION
  Report Type: Spontaneous
  Country: LV (occurrence: LV)
  Receive Date: 20170525
  Receipt Date: 20170531
  Transmission Date: 20170830
  Serious: Yes (Death, Life-Threatening, Other)
  Sender: FDA-Public Use
  Company Number: LV-009507513-1705LVA010446

PATIENT
  Age: 78 Year
  Sex: Male

DRUGS (2)
  1. ZERBAXA [Suspect]
     Active Substance: CEFTOLOZANE SULFATE\TAZOBACTAM SODIUM
     Indication: URINARY TRACT INFECTION
     Dosage: 0.375/1.0 X 3
     Route: 042
     Dates: start: 20170407, end: 20170412
  2. BISEPTOL [Suspect]
     Active Substance: SULFAMETHOXAZOLE\TRIMETHOPRIM
     Indication: URINARY TRACT INFECTION
     Dosage: 960 MG, BID
     Route: 048
     Dates: start: 20170412, end: 20170415

REACTIONS (1)
  - Mesenteric vein thrombosis [Fatal]

NARRATIVE: CASE EVENT DATE: 20170415
